FAERS Safety Report 4872571-2 (Version None)
Quarter: 2006Q1

REPORT INFORMATION
  Report Type: 
  Country: None (occurrence: None)
  Receive Date: 20060103
  Receipt Date: 20051221
  Transmission Date: 20060701
  Serious: Yes (Death)
  Sender: FDA-Public Use
  Company Number: CA_051109027

PATIENT
  Age: 65 Year
  Sex: Male

DRUGS (7)
  1. CIALIS (TADALAFIL) TABLETS [Suspect]
     Indication: ERECTILE DYSFUNCTION
     Dosage: 20 MG
  2. BROMOCRIPTINE MESYLATE [Concomitant]
  3. LIPITOR [Concomitant]
  4. LOPRESSOR (METROPOLOL TARTRATE) [Concomitant]
  5. NORVASC [Concomitant]
  6. ASPIRIN [Concomitant]
  7. PLAVIX [Concomitant]

REACTIONS (1)
  - CARDIAC DISORDER [None]
